FAERS Safety Report 9011824 (Version 1)
Quarter: 2013Q1

REPORT INFORMATION
  Report Type: Spontaneous
  Country: US (occurrence: US)
  Receive Date: 20130113
  Receipt Date: 20130113
  Transmission Date: 20140127
  Serious: Yes (Disabling, Other)
  Sender: FDA-Public Use
  Company Number: US-009507513-1301USA003787

PATIENT
  Sex: Male

DRUGS (34)
  1. SINGULAIR [Suspect]
  2. METOCLOPRAMIDE [Suspect]
     Indication: GASTROINTESTINAL DISORDER
     Dosage: 10 MG, QID
  3. AMITRIPTYLINE HYDROCHLORIDE [Suspect]
  4. ZOLPIDEM TARTRATE [Suspect]
  5. TRAZODONE HYDROCHLORIDE [Suspect]
  6. AMITIZA [Suspect]
  7. PANTOPRAZOLE [Concomitant]
  8. GLYBURIDE [Concomitant]
  9. COZAAR [Concomitant]
  10. VERAPAMIL [Concomitant]
  11. TRICOR (ADENOSINE) [Concomitant]
  12. ALLOPURINOL [Concomitant]
  13. JANUVIA [Concomitant]
  14. PLAVIX [Concomitant]
  15. FUROSEMIDE [Concomitant]
  16. ALPRAZOLAM [Concomitant]
  17. SIMVASTATIN [Concomitant]
  18. ALBUTEROL [Concomitant]
  19. ACETAMINOPHEN (+) OXYCODONE HYDROCHLORIDE [Concomitant]
  20. LACTULOSE [Concomitant]
  21. DIAZEPAM [Concomitant]
  22. BACLOFEN [Concomitant]
  23. CEPHALEXIN [Concomitant]
  24. SUCRALFATE [Concomitant]
  25. METHYLPREDNISOLONE [Concomitant]
  26. NAPROXEN [Concomitant]
  27. CLONIDINE [Concomitant]
  28. SOMA [Concomitant]
  29. PROMETHAZINE [Concomitant]
  30. MIRALAX [Concomitant]
  31. OXYCODONE HYDROCHLORIDE [Concomitant]
  32. PROPOXYPHENE HYDROCHLORIDE [Concomitant]
  33. TIZANIDINE HYDROCHLORIDE [Concomitant]
  34. APAP [Concomitant]

REACTIONS (6)
  - Tardive dyskinesia [Unknown]
  - Pain [Unknown]
  - Family stress [Unknown]
  - Extrapyramidal disorder [Unknown]
  - Economic problem [Unknown]
  - Anxiety [Unknown]
